FAERS Safety Report 9397662 (Version 1)
Quarter: 2013Q3

REPORT INFORMATION
  Report Type: Spontaneous
  Country: FR (occurrence: FR)
  Receive Date: 20130712
  Receipt Date: 20130712
  Transmission Date: 20140515
  Serious: Yes (Other)
  Sender: FDA-Public Use
  Company Number: FR-BAYER-2013-083487

PATIENT
  Age: 65 Year
  Sex: Male

DRUGS (7)
  1. NEXAVAR [Suspect]
     Indication: HEPATOCELLULAR CARCINOMA
     Dosage: 4 DF, QD
     Route: 048
     Dates: start: 20130514, end: 20130531
  2. LASILIX [Concomitant]
     Dosage: UNK
  3. LOPERAMIDE [Concomitant]
     Dosage: UNK
  4. FUNGIZONE [Concomitant]
     Dosage: UNK
  5. KALEORID [Concomitant]
     Dosage: UNK
  6. NOVONORM [Concomitant]
     Dosage: UNK
  7. ARANESP [Concomitant]
     Dosage: UNK

REACTIONS (2)
  - Testicular necrosis [Not Recovered/Not Resolved]
  - Gangrene [Not Recovered/Not Resolved]
